FAERS Safety Report 18881581 (Version 4)
Quarter: 2021Q3

REPORT INFORMATION
  Report Type: Spontaneous
  Country: HR (occurrence: HR)
  Receive Date: 20210212
  Receipt Date: 20210910
  Transmission Date: 20211014
  Serious: Yes (Hospitalization, Other)
  Sender: FDA-Public Use
  Company Number: HR-GILEAD-2021-0516477

PATIENT
  Age: 61 Year
  Sex: Male
  Weight: 80 kg

DRUGS (10)
  1. PHYSIOTENS [Concomitant]
     Active Substance: MOXONIDINE
     Dosage: 0.2 MG AT 10 PM
  2. PROPRANOLOL [Concomitant]
     Active Substance: PROPRANOLOL HYDROCHLORIDE
  3. NOVOMIX [Concomitant]
     Active Substance: INSULIN ASPART
  4. SIOFOR [Concomitant]
     Active Substance: METFORMIN HYDROCHLORIDE
  5. CO PERINEVA [Concomitant]
     Active Substance: INDAPAMIDE\PERINDOPRIL ERBUMINE
     Dosage: 1.25 MG / 4
  6. EDEMID [Concomitant]
     Active Substance: FUROSEMIDE
     Dosage: 1/2 TABLET QD
  7. CONTROLOC [Concomitant]
     Active Substance: PANTOPRAZOLE SODIUM
     Dosage: 40 MG
  8. EPCLUSA [Suspect]
     Active Substance: SOFOSBUVIR\VELPATASVIR
     Indication: CHRONIC HEPATITIS C
     Dosage: UNK
     Route: 048
     Dates: start: 20201218
  9. EPCLUSA [Suspect]
     Active Substance: SOFOSBUVIR\VELPATASVIR
     Indication: HEPATIC CIRRHOSIS
  10. ALOPURINOL [Concomitant]
     Active Substance: ALLOPURINOL

REACTIONS (11)
  - Nephritis [Recovering/Resolving]
  - Exfoliative rash [Recovering/Resolving]
  - Eosinophilia [Recovered/Resolved]
  - Dermatitis [Unknown]
  - Dermatitis exfoliative generalised [Unknown]
  - Nephritis [Recovering/Resolving]
  - Eosinophilia [Recovering/Resolving]
  - Interstitial lung disease [Unknown]
  - Pneumonitis [Recovering/Resolving]
  - Azotaemia [Recovering/Resolving]
  - Rash [Recovering/Resolving]

NARRATIVE: CASE EVENT DATE: 20201223
